FAERS Safety Report 8809895 (Version 1)
Quarter: 2012Q4

REPORT INFORMATION
  Report Type: 
  Country: US (occurrence: US)
  Receive Date: 20120926
  Receipt Date: 20120926
  Transmission Date: 20130627
  Serious: Yes (Death)
  Sender: FDA-Public Use
  Company Number: US-ACTELION-A-NJ2012-71691

PATIENT
  Age: 73 Year
  Sex: Female

DRUGS (10)
  1. TRACLEER [Suspect]
     Indication: PULMONARY ARTERIAL HYPERTENSION
     Dosage: UNK
     Route: 048
     Dates: end: 20120915
  2. REMODULIN [Concomitant]
  3. PREDNISONE [Concomitant]
  4. ADVAIR [Concomitant]
  5. LOPRESSOR [Concomitant]
  6. SYNTHROID [Concomitant]
  7. CELEXA [Concomitant]
  8. IRON [Concomitant]
  9. DIGOXIN [Concomitant]
  10. SPIRIVA [Concomitant]

REACTIONS (1)
  - Aneurysm [Fatal]
